FAERS Safety Report 7304877-1 (Version None)
Quarter: 2011Q1

REPORT INFORMATION
  Report Type: 
  Country: None (occurrence: None)
  Receive Date: 20110222
  Receipt Date: 20110214
  Transmission Date: 20110831
  Serious: Yes (Hospitalization)
  Sender: FDA-Public Use
  Company Number: BR-US-EMD SERONO, INC.-7042243

PATIENT
  Sex: Female

DRUGS (3)
  1. REBIF [Suspect]
     Indication: RELAPSING-REMITTING MULTIPLE SCLEROSIS
     Dates: start: 20080324
  2. AZATHIOPRIN [Concomitant]
  3. AMYTRIPTYLINE [Concomitant]

REACTIONS (3)
  - DISORIENTATION [None]
  - EPILEPSY [None]
  - CONFUSIONAL STATE [None]
